FAERS Safety Report 4516988-4 (Version None)
Quarter: 2005Q1

REPORT INFORMATION
  Report Type: 
  Country: None (occurrence: None)
  Receive Date: 20041029
  Receipt Date: 20040924
  Transmission Date: 20050727
  Serious: No
  Sender: FDA-Public Use
  Company Number: 2004-120647-NL

PATIENT
  Age: 22 Year
  Sex: Female
  Weight: 89.5 kg

DRUGS (3)
  1. NUVARING [Suspect]
     Indication: CONTRACEPTION
     Dosage: DF DAILY VAGINAL
     Route: 067
     Dates: start: 20040425
  2. NUVARING [Suspect]
     Indication: MENSTRUATION IRREGULAR
     Dosage: DF DAILY VAGINAL
     Route: 067
     Dates: start: 20040425
  3. NUVARING [Suspect]
     Indication: PREMENSTRUAL SYNDROME
     Dosage: DF DAILY VAGINAL
     Route: 067
     Dates: start: 20040425

REACTIONS (9)
  - ABDOMINAL DISTENSION [None]
  - AGITATION [None]
  - HEADACHE [None]
  - HOT FLUSH [None]
  - IRRITABILITY [None]
  - NAUSEA [None]
  - OEDEMA PERIPHERAL [None]
  - PAIN IN EXTREMITY [None]
  - PREMENSTRUAL SYNDROME [None]
